FAERS Safety Report 7395739-2 (Version None)
Quarter: 2011Q2

REPORT INFORMATION
  Report Type: 
  Country: None (occurrence: None)
  Receive Date: 20110405
  Receipt Date: 20110329
  Transmission Date: 20111010
  Serious: Yes (Hospitalization)
  Sender: FDA-Public Use
  Company Number: IE-MEDIMMUNE-MEDI-0013026

PATIENT
  Sex: Female

DRUGS (4)
  1. SYNAGIS [Suspect]
     Route: 030
     Dates: end: 20110117
  2. CEFPODOXIME PROXETIL [Concomitant]
  3. SALBUTAMOL [Concomitant]
  4. SYNAGIS [Suspect]
     Route: 030
     Dates: start: 20101124

REACTIONS (4)
  - SURGERY [None]
  - COLLAPSE OF LUNG [None]
  - RESPIRATORY SYNCYTIAL VIRUS INFECTION [None]
  - PNEUMONIA [None]
